FAERS Safety Report 20389914 (Version 1)
Quarter: 2022Q1

REPORT INFORMATION
  Report Type: Spontaneous
  Country: CN (occurrence: None)
  Receive Date: 20220128
  Receipt Date: 20220128
  Transmission Date: 20220423
  Serious: Yes (Other)
  Sender: FDA-Public Use
  Company Number: CN-ROCHE-3009407

PATIENT
  Age: 65 Year
  Sex: Male
  Weight: 65 kg

DRUGS (33)
  1. MABTHERA [Suspect]
     Active Substance: RITUXIMAB
     Indication: Diffuse large B-cell lymphoma
     Dosage: R-MTX
     Route: 041
     Dates: start: 20190418
  2. MABTHERA [Suspect]
     Active Substance: RITUXIMAB
     Dosage: R-MTX
     Route: 041
     Dates: start: 20191007
  3. MABTHERA [Suspect]
     Active Substance: RITUXIMAB
     Dosage: R2+CHOP
     Route: 041
     Dates: start: 20210824
  4. MABTHERA [Suspect]
     Active Substance: RITUXIMAB
     Dosage: R2+CHOP
     Route: 041
     Dates: start: 20210915
  5. MABTHERA [Suspect]
     Active Substance: RITUXIMAB
     Dosage: R2+CHOP
     Route: 041
     Dates: start: 20211011
  6. MABTHERA [Suspect]
     Active Substance: RITUXIMAB
     Dosage: R+ZANUBRUTINIB
     Route: 041
     Dates: start: 20211217
  7. METHOTREXATE [Concomitant]
     Active Substance: METHOTREXATE
     Indication: Diffuse large B-cell lymphoma
     Dosage: R-MTX
     Route: 065
     Dates: start: 20190418
  8. METHOTREXATE [Concomitant]
     Active Substance: METHOTREXATE
     Dosage: R-MTX
     Route: 065
     Dates: start: 20191007
  9. DOXORUBICIN [Concomitant]
     Active Substance: DOXORUBICIN
     Indication: Diffuse large B-cell lymphoma
     Dosage: CDOP
     Route: 065
     Dates: start: 20190426
  10. DOXORUBICIN [Concomitant]
     Active Substance: DOXORUBICIN
     Dosage: CDOP
     Route: 065
     Dates: start: 20191018
  11. ZANUBRUTINIB [Concomitant]
     Active Substance: ZANUBRUTINIB
     Indication: Diffuse large B-cell lymphoma
     Dosage: R+ZANUBRUTINIB
     Route: 048
     Dates: start: 20211217
  12. VINDESINE [Concomitant]
     Active Substance: VINDESINE
     Indication: Diffuse large B-cell lymphoma
     Dosage: CDOP
     Route: 065
     Dates: start: 20190426
  13. VINDESINE [Concomitant]
     Active Substance: VINDESINE
     Dosage: CDOP
     Route: 065
     Dates: start: 20191018
  14. VINDESINE [Concomitant]
     Active Substance: VINDESINE
     Dosage: R2+CHOP
     Route: 042
     Dates: start: 20210824
  15. VINDESINE [Concomitant]
     Active Substance: VINDESINE
     Dosage: R2+CHOP
     Route: 042
     Dates: start: 20210915
  16. VINDESINE [Concomitant]
     Active Substance: VINDESINE
     Dosage: R2+CHOP
     Route: 042
     Dates: start: 20211011
  17. LENALIDOMIDE [Concomitant]
     Active Substance: LENALIDOMIDE
     Indication: Diffuse large B-cell lymphoma
     Route: 048
     Dates: start: 202009
  18. LENALIDOMIDE [Concomitant]
     Active Substance: LENALIDOMIDE
     Dosage: R2+CHOP
     Route: 048
     Dates: start: 20210824
  19. LENALIDOMIDE [Concomitant]
     Active Substance: LENALIDOMIDE
     Dosage: R2+CHOP
     Route: 048
     Dates: start: 20210915
  20. LENALIDOMIDE [Concomitant]
     Active Substance: LENALIDOMIDE
     Dosage: R2+CHOP
     Route: 048
     Dates: start: 20211011
  21. CYCLOPHOSPHAMIDE [Concomitant]
     Active Substance: CYCLOPHOSPHAMIDE
     Indication: Diffuse large B-cell lymphoma
     Dosage: CDOP
     Route: 065
     Dates: start: 20190426
  22. CYCLOPHOSPHAMIDE [Concomitant]
     Active Substance: CYCLOPHOSPHAMIDE
     Dosage: CDOP
     Route: 065
     Dates: start: 20191018
  23. CYCLOPHOSPHAMIDE [Concomitant]
     Active Substance: CYCLOPHOSPHAMIDE
     Dosage: R2+CHOP
     Route: 041
     Dates: start: 20210824
  24. CYCLOPHOSPHAMIDE [Concomitant]
     Active Substance: CYCLOPHOSPHAMIDE
     Dosage: R2+CHOP
     Route: 041
     Dates: start: 20210915
  25. CYCLOPHOSPHAMIDE [Concomitant]
     Active Substance: CYCLOPHOSPHAMIDE
     Dosage: R2+CHOP
     Route: 041
     Dates: start: 20211011
  26. PREDNISONE [Concomitant]
     Active Substance: PREDNISONE
     Indication: Diffuse large B-cell lymphoma
     Dosage: CDOP
     Route: 065
     Dates: start: 20190426
  27. PREDNISONE [Concomitant]
     Active Substance: PREDNISONE
     Dosage: CDOP
     Route: 065
     Dates: start: 20191018
  28. DOXORUBICIN HYDROCHLORIDE [Concomitant]
     Active Substance: DOXORUBICIN HYDROCHLORIDE
     Indication: Diffuse large B-cell lymphoma
     Dosage: R2+CHOP
     Route: 041
     Dates: start: 20210824
  29. DOXORUBICIN HYDROCHLORIDE [Concomitant]
     Active Substance: DOXORUBICIN HYDROCHLORIDE
     Dosage: R2+CHOP
     Route: 041
     Dates: start: 20210915
  30. DOXORUBICIN HYDROCHLORIDE [Concomitant]
     Active Substance: DOXORUBICIN HYDROCHLORIDE
     Dosage: R2+CHOP
     Route: 041
     Dates: start: 20211011
  31. DEXAMETHASONE [Concomitant]
     Active Substance: DEXAMETHASONE
     Indication: Diffuse large B-cell lymphoma
     Dosage: R2+CHOP
     Route: 041
     Dates: start: 20210824
  32. DEXAMETHASONE [Concomitant]
     Active Substance: DEXAMETHASONE
     Dosage: R2+CHOP
     Route: 041
     Dates: start: 20210915
  33. DEXAMETHASONE [Concomitant]
     Active Substance: DEXAMETHASONE
     Dosage: R2+CHOP
     Route: 041
     Dates: start: 20211011

REACTIONS (5)
  - Pneumonia [Unknown]
  - Fall [Unknown]
  - Myocardial injury [Unknown]
  - Rib fracture [Unknown]
  - Pneumothorax [Unknown]
